FAERS Safety Report 6644923-1 (Version None)
Quarter: 2010Q1

REPORT INFORMATION
  Report Type: 
  Country: None (occurrence: None)
  Receive Date: 20100322
  Receipt Date: 20100309
  Transmission Date: 20100710
  Serious: Yes (Other)
  Sender: FDA-Public Use
  Company Number: PHHY2010FR14881

PATIENT
  Sex: Male
  Weight: 15 kg

DRUGS (8)
  1. NEORAL [Suspect]
     Indication: SKIN GRAFT
     Dosage: 30 MG, BID
     Dates: start: 20091003
  2. BACTRIM [Suspect]
     Dosage: 300 MG, TID
     Dates: start: 20090909
  3. URSOLVAN [Concomitant]
     Dosage: 200 MG, BID
  4. ORACILLINE [Concomitant]
     Dosage: 375000 IU, BID
     Dates: start: 20091013
  5. ZOVIRAX [Concomitant]
     Indication: HERPES VIRUS INFECTION
     Dosage: 150 MG, TID
     Dates: start: 20091013
  6. VFEND [Concomitant]
     Dosage: 200 MG, BID
     Dates: start: 20091102
  7. VFEND [Concomitant]
     Dosage: 200 MG/DAY
     Dates: start: 20091117
  8. TARGOCID [Concomitant]
     Dosage: 150 MG/DAY

REACTIONS (2)
  - HYPERCALCAEMIA [None]
  - HYPERKALAEMIA [None]
